FAERS Safety Report 24250098 (Version 3)
Quarter: 2024Q3

REPORT INFORMATION
  Report Type: Spontaneous
  Country: CH (occurrence: CH)
  Receive Date: 20240826
  Receipt Date: 20240829
  Transmission Date: 20241017
  Serious: Yes (Death, Other)
  Sender: PFIZER
  Company Number: None

PATIENT
  Age: 87 Year
  Sex: Female
  Weight: 48 kg

DRUGS (11)
  1. FRAGMIN [Suspect]
     Active Substance: DALTEPARIN SODIUM
     Indication: Thrombosis prophylaxis
     Dosage: 5000 IU, 1X/DAY
     Route: 058
     Dates: start: 20240203, end: 20240204
  2. PANTOPRAZOLE [Suspect]
     Active Substance: PANTOPRAZOLE
     Indication: Dysphagia
     Dosage: 40 MG,  EVERY 12 HOURS (2X/DAY); FIXED MEDICATION
     Route: 040
  3. PANTOPRAZOLE [Suspect]
     Active Substance: PANTOPRAZOLE
     Indication: Gastrointestinal haemorrhage
  4. FERINJECT [Suspect]
     Active Substance: FERRIC CARBOXYMALTOSE
     Indication: Hypochromic anaemia
     Dosage: 1000 MG OF IRON PER INFUSION (STOPPED DUE TO THE ONSET OF SYMPTOMS), 1 DF
     Route: 040
     Dates: start: 20240204, end: 20240204
  5. RISPERDAL [Suspect]
     Active Substance: RISPERIDONE
     Indication: Delirium
     Dosage: MAX. 2 MG/DAY (2 MG/24 HOURS)
     Route: 048
     Dates: start: 20240204, end: 20240205
  6. RISPERDAL [Suspect]
     Active Substance: RISPERIDONE
     Indication: Restlessness
  7. RISPERDAL [Suspect]
     Active Substance: RISPERIDONE
     Indication: Agitation
  8. ACETAMINOPHEN [Suspect]
     Active Substance: ACETAMINOPHEN
     Indication: Pain
     Dosage: 1 G/100 ML, SINGLE
     Route: 040
     Dates: start: 20240204, end: 20240204
  9. ACETAMINOPHEN [Suspect]
     Active Substance: ACETAMINOPHEN
     Dosage: UNK
     Route: 065
     Dates: start: 20240204
  10. NITROLINGUAL [Suspect]
     Active Substance: NITROGLYCERIN
     Dosage: UNK
     Route: 065
     Dates: start: 20240204
  11. ONDANSETRON HYDROCHLORIDE [Suspect]
     Active Substance: ONDANSETRON HYDROCHLORIDE
     Dosage: UNK
     Route: 065
     Dates: start: 20240204

REACTIONS (12)
  - Death [Fatal]
  - Hypertensive crisis [Recovering/Resolving]
  - Musculoskeletal chest pain [Recovering/Resolving]
  - Dyspnoea [Recovering/Resolving]
  - Nausea [Recovering/Resolving]
  - Choking [Recovering/Resolving]
  - Hypoxia [Recovering/Resolving]
  - Delirium [Unknown]
  - Dizziness [Recovering/Resolving]
  - Micturition urgency [Recovering/Resolving]
  - Tachycardia [Recovering/Resolving]
  - Ultrasound kidney abnormal [Unknown]

NARRATIVE: CASE EVENT DATE: 20240204
